FAERS Safety Report 7645529-8 (Version None)
Quarter: 2011Q3

REPORT INFORMATION
  Report Type: 
  Country: None (occurrence: None)
  Receive Date: 20110729
  Receipt Date: 20110720
  Transmission Date: 20111222
  Serious: Yes (Hospitalization)
  Sender: FDA-Public Use
  Company Number: NO-PFIZER INC-2010178123

PATIENT
  Age: 60 Year
  Sex: Female

DRUGS (11)
  1. LIPITOR [Suspect]
     Indication: HYPERCHOLESTEROLAEMIA
     Dosage: 80 MG, 1X/DAY
     Route: 048
     Dates: start: 20070101, end: 20101213
  2. LEVOTHYROXINE SODIUM [Concomitant]
     Indication: HYPOTHYROIDISM
     Dosage: 1 TABLET 4 DAYS A WEEK, 1,5 TABLETS 3 DAYS A WEEK.
     Route: 048
  3. PRILOSEC [Concomitant]
     Indication: GASTROOESOPHAGEAL REFLUX DISEASE
     Dosage: 40 MG, 1X/DAY
     Route: 048
     Dates: start: 20070101, end: 20070101
  4. SERETIDE [Suspect]
     Indication: ASTHMA
     Dosage: UNK
     Dates: start: 20070101
  5. ASPIRIN [Concomitant]
     Route: 048
  6. ARTHROTEC [Concomitant]
     Indication: ANKYLOSING SPONDYLITIS
     Route: 048
  7. ATACAND [Concomitant]
     Indication: HYPERTENSION
     Dosage: 8 MG, 1X/DAY
     Route: 048
     Dates: start: 20090121, end: 20110101
  8. LIPITOR [Suspect]
     Indication: BLOOD CHOLESTEROL INCREASED
  9. SERETIDE DISKUS [Concomitant]
     Dosage: 50 A?G/2 A?G
     Route: 055
     Dates: start: 20070101
  10. AIROMIR [Concomitant]
     Dosage: 2 INHALATIONS WHEN NECESSARY
     Route: 055
  11. VENTOLIN HFA [Concomitant]
     Indication: ASTHMA
     Dosage: .01 MG, UNK
     Dates: start: 20070101

REACTIONS (10)
  - PAIN [None]
  - MALAISE [None]
  - RASH [None]
  - MYALGIA [None]
  - DRUG INTERACTION [None]
  - RENAL FAILURE [None]
  - HYPERSENSITIVITY [None]
  - BACK PAIN [None]
  - HEPATITIS TOXIC [None]
  - ARTHRALGIA [None]
